FAERS Safety Report 8898484 (Version 1)
Quarter: 2012Q4

REPORT INFORMATION
  Report Type: 
  Country: US (occurrence: US)
  Receive Date: 20121108
  Receipt Date: 20121108
  Transmission Date: 20130627
  Serious: No
  Sender: FDA-Public Use
  Company Number: US-AMGEN-USASP2012024135

PATIENT
  Sex: Female

DRUGS (2)
  1. ENBREL [Suspect]
     Indication: SCLERODERMA
     Dosage: 25 mg, qwk
     Dates: start: 20120406
  2. ENBREL [Suspect]
     Indication: RAYNAUD^S PHENOMENON

REACTIONS (1)
  - Inappropriate schedule of drug administration [Unknown]
